FAERS Safety Report 10521814 (Version 2)
Quarter: 2014Q4

REPORT INFORMATION
  Report Type: Spontaneous
  Country: US (occurrence: US)
  Receive Date: 20141016
  Receipt Date: 20141016
  Transmission Date: 20150528
  Serious: Yes (Death, Other)
  Sender: FDA-Public Use
  Company Number: US-GLAXOSMITHKLINE-A0870871A

PATIENT
  Sex: Female

DRUGS (2)
  1. AVANDIA [Suspect]
     Active Substance: ROSIGLITAZONE MALEATE
     Indication: TYPE 2 DIABETES MELLITUS
     Dosage: 8 MG, QD
     Route: 048
     Dates: start: 200001, end: 200401
  2. AVANDIA [Suspect]
     Active Substance: ROSIGLITAZONE MALEATE
     Indication: HYPERTENSION

REACTIONS (10)
  - Coronary artery disease [Unknown]
  - Atrial fibrillation [Unknown]
  - Cardiac failure congestive [Unknown]
  - Myocardial infarction [Unknown]
  - Hip fracture [Unknown]
  - Hypertension [Unknown]
  - Cerebrovascular accident [Fatal]
  - Pulmonary oedema [Unknown]
  - Blindness [Unknown]
  - Nephropathy [Unknown]

NARRATIVE: CASE EVENT DATE: 1979
